FAERS Safety Report 7559298-3 (Version None)
Quarter: 2011Q2

REPORT INFORMATION
  Report Type: 
  Country: None (occurrence: None)
  Receive Date: 20110621
  Receipt Date: 20110607
  Transmission Date: 20111010
  Serious: Yes (Death, Other)
  Sender: FDA-Public Use
  Company Number: FR-CELGENEUS-056-50794-11061183

PATIENT

DRUGS (2)
  1. VIDAZA [Suspect]
     Indication: ACUTE MYELOID LEUKAEMIA
     Dosage: 75 MILLIGRAM/SQ. METER
     Route: 050
  2. VIDAZA [Suspect]
     Indication: MYELODYSPLASTIC SYNDROME

REACTIONS (5)
  - GRAFT VERSUS HOST DISEASE [None]
  - FEBRILE NEUTROPENIA [None]
  - INFECTION [None]
  - DISEASE PROGRESSION [None]
  - DEATH [None]
